FAERS Safety Report 20731142 (Version 1)
Quarter: 2022Q2

REPORT INFORMATION
  Report Type: Report from Study
  Country: US (occurrence: US)
  Receive Date: 20220420
  Receipt Date: 20220420
  Transmission Date: 20220721
  Serious: Yes (Other)
  Sender: FDA-Public Use
  Company Number: US-MYLANLABS-2022M1028921

PATIENT

DRUGS (1)
  1. BUPROPION [Suspect]
     Active Substance: BUPROPION
     Indication: Product used for unknown indication
     Dosage: NASAL INSUFFLATION
     Route: 045

REACTIONS (3)
  - Electrocardiogram QT prolonged [Unknown]
  - Drug abuse [Unknown]
  - Toxicity to various agents [Unknown]
